FAERS Safety Report 7927889-3 (Version None)
Quarter: 2011Q4

REPORT INFORMATION
  Report Type: 
  Country: None (occurrence: None)
  Receive Date: 20111118
  Receipt Date: 20111114
  Transmission Date: 20120403
  Serious: No
  Sender: FDA-Public Use
  Company Number: US-US-EMD SERONO, INC.-7094381

PATIENT
  Sex: Female
  Weight: 59 kg

DRUGS (4)
  1. DICLOXYCILLIN [Concomitant]
     Indication: DERMAL CYST
  2. INTRAUTERINE DEVICE [Concomitant]
     Route: 015
  3. UNSPECIFIED ANTIBIOTIC [Concomitant]
     Indication: DERMAL CYST
  4. REBIF [Suspect]
     Indication: MULTIPLE SCLEROSIS
     Route: 058
     Dates: start: 20110826

REACTIONS (5)
  - NAUSEA [None]
  - DISCOMFORT [None]
  - HEADACHE [None]
  - INJECTION SITE ERYTHEMA [None]
  - INJECTION SITE PAIN [None]
